FAERS Safety Report 10515321 (Version 1)
Quarter: 2014Q4

REPORT INFORMATION
  Report Type: Spontaneous
  Country: RU (occurrence: RU)
  Receive Date: 20141014
  Receipt Date: 20141014
  Transmission Date: 20150528
  Serious: Yes (Hospitalization, Other)
  Sender: FDA-Public Use
  Company Number: RU-ROCHE-1472150

PATIENT
  Age: 53 Year
  Sex: Female
  Weight: 105 kg

DRUGS (3)
  1. EPOETIN BETA [Suspect]
     Active Substance: ERYTHROPOIETIN
     Indication: ANAEMIA
     Route: 065
     Dates: start: 201101, end: 201107
  2. MIRCERA [Suspect]
     Active Substance: PEGZEREPOETIN ALFA
     Indication: ANAEMIA
     Route: 065
     Dates: start: 201107
  3. ARANESP [Concomitant]
     Active Substance: DARBEPOETIN ALFA
     Indication: ANAEMIA
     Route: 065
     Dates: start: 201101, end: 201107

REACTIONS (6)
  - Foot amputation [Not Recovered/Not Resolved]
  - Finger amputation [Not Recovered/Not Resolved]
  - Leg amputation [Not Recovered/Not Resolved]
  - Stress ulcer [Recovered/Resolved]
  - Pneumonia [Recovered/Resolved]
  - Haemoglobin decreased [Recovered/Resolved]

NARRATIVE: CASE EVENT DATE: 201206
